FAERS Safety Report 5005542-6 (Version None)
Quarter: 2006Q2

REPORT INFORMATION
  Report Type: 
  Country: None (occurrence: None)
  Receive Date: 20060518
  Receipt Date: 20060509
  Transmission Date: 20061013
  Serious: Yes (Hospitalization)
  Sender: FDA-Public Use
  Company Number: JP-JNJFOC-20051103338

PATIENT
  Age: 30 Year
  Sex: Male

DRUGS (5)
  1. TAVANIC [Suspect]
     Indication: COLITIS
     Route: 048
     Dates: start: 20051103, end: 20051104
  2. TAVANIC [Suspect]
     Indication: GASTROENTERITIS
     Route: 048
     Dates: start: 20051103, end: 20051104
  3. BUSCOPAN [Concomitant]
     Indication: GASTROENTERITIS
     Route: 048
  4. MOTILIUM [Concomitant]
     Indication: GASTROENTERITIS
     Route: 048
  5. PERENTEROL [Concomitant]
     Indication: GASTROENTERITIS
     Route: 048

REACTIONS (4)
  - DYSPNOEA [None]
  - ORTHOSTATIC HYPOTENSION [None]
  - PARAESTHESIA [None]
  - TETANY [None]
